FAERS Safety Report 8295623-6 (Version None)
Quarter: 2012Q2

REPORT INFORMATION
  Report Type: 
  Country: None (occurrence: None)
  Receive Date: 20120418
  Receipt Date: 20120411
  Transmission Date: 20120825
  Serious: Yes (Other)
  Sender: FDA-Public Use
  Company Number: FR-SANOFI-AVENTIS-2012SA025125

PATIENT
  Age: 91 Year
  Sex: Male

DRUGS (18)
  1. FUROSEMIDE [Concomitant]
     Dates: start: 20120101
  2. NPH INSULIN [Concomitant]
     Dates: start: 20120301, end: 20120315
  3. BISOPROLOL FUMARATE [Suspect]
     Route: 048
     Dates: start: 20120301, end: 20120317
  4. ASPIRIN [Concomitant]
     Dates: start: 20120101, end: 20120323
  5. REPAGLINIDE [Concomitant]
     Dates: start: 20120101, end: 20120301
  6. LOVENOX [Concomitant]
     Dates: start: 20120317, end: 20120319
  7. COLCHICINE [Suspect]
     Route: 048
     Dates: start: 20120301, end: 20120314
  8. ATORVASTATIN [Concomitant]
     Dates: start: 20120101
  9. INSULIN DETEMIR [Concomitant]
     Dates: start: 20120315
  10. NOVORAPID [Concomitant]
     Dates: start: 20120315
  11. AUGMENTIN '125' [Concomitant]
     Indication: SEPSIS
     Dates: start: 20120317
  12. ALFUZOSIN HCL [Suspect]
     Route: 048
     Dates: start: 20120101, end: 20120318
  13. FOLIC ACID [Concomitant]
     Dates: start: 20120301, end: 20120314
  14. CALCIPARINE [Concomitant]
     Dates: start: 20120316, end: 20120317
  15. AMOXICILLIN [Concomitant]
     Indication: SEPSIS
     Dates: start: 20120317
  16. CORDARONE [Concomitant]
     Dates: start: 20120101
  17. TRAMADOL HCL [Concomitant]
     Dates: start: 20120301, end: 20120314
  18. ACETAMINOPHEN [Concomitant]
     Dates: start: 20120301

REACTIONS (1)
  - THROMBOCYTOPENIA [None]
